FAERS Safety Report 15560519 (Version 1)
Quarter: 2018Q4

REPORT INFORMATION
  Report Type: Spontaneous
  Country: US (occurrence: US)
  Receive Date: 20181029
  Receipt Date: 20181029
  Transmission Date: 20190205
  Serious: Yes (Other)
  Sender: FDA-Public Use
  Company Number: US-TEVA-2018-US-967757

PATIENT
  Age: 30 Year
  Sex: Male

DRUGS (1)
  1. COPAXONE [Suspect]
     Active Substance: GLATIRAMER ACETATE
     Indication: MULTIPLE SCLEROSIS
     Route: 058
     Dates: start: 20180303, end: 20181005

REACTIONS (6)
  - Drug ineffective [Unknown]
  - Fatigue [Recovering/Resolving]
  - Muscle spasms [Recovering/Resolving]
  - Balance disorder [Recovering/Resolving]
  - Hypoaesthesia [Recovering/Resolving]
  - Multiple sclerosis [Unknown]

NARRATIVE: CASE EVENT DATE: 201806
